FAERS Safety Report 16751787 (Version 4)
Quarter: 2020Q2

REPORT INFORMATION
  Report Type: Report from Study
  Country: CA (occurrence: CA)
  Receive Date: 20190828
  Receipt Date: 20200630
  Transmission Date: 20200713
  Serious: Yes (Hospitalization, Other)
  Sender: FDA-Public Use
  Company Number: CA-JNJFOC-20190718450

PATIENT
  Age: 48 Year
  Sex: Female
  Weight: 124 kg

DRUGS (2)
  1. REMICADE [Suspect]
     Active Substance: INFLIXIMAB
     Route: 042
     Dates: start: 20151020
  2. REMICADE [Suspect]
     Active Substance: INFLIXIMAB
     Indication: CROHN^S DISEASE
     Dosage: STRENGTH = 100 MG; PATIENT^S TREATMENT WAS WITHDRAWN
     Route: 042
     Dates: start: 20150122

REACTIONS (5)
  - Abdominal pain [Recovered/Resolved]
  - Myoclonus [Unknown]
  - Sinusitis [Recovered/Resolved]
  - Drug ineffective [Unknown]
  - Lupus-like syndrome [Unknown]

NARRATIVE: CASE EVENT DATE: 20190627
